FAERS Safety Report 10921031 (Version 1)
Quarter: 2015Q1

REPORT INFORMATION
  Report Type: Spontaneous
  Country: US (occurrence: None)
  Receive Date: 20150313
  Receipt Date: 20150313
  Transmission Date: 20150721
  Serious: No
  Sender: FDA-Public Use
  Company Number: None

PATIENT
  Age: 47 Year
  Sex: Female
  Weight: 79.38 kg

DRUGS (5)
  1. TEA [Concomitant]
     Active Substance: TEA LEAF
  2. BELVIQ [Suspect]
     Active Substance: LORCASERIN HYDROCHLORIDE
     Indication: BODY MASS INDEX INCREASED
     Dosage: TAKEN BY MOUTH
     Dates: start: 20150223, end: 20150302
  3. BELVIQ [Suspect]
     Active Substance: LORCASERIN HYDROCHLORIDE
     Indication: BLOOD CHOLESTEROL INCREASED
     Dosage: TAKEN BY MOUTH
     Dates: start: 20150223, end: 20150302
  4. MULTIVITAMINS [Concomitant]
     Active Substance: VITAMINS
  5. B12 COMPLEX VITAMINS [Concomitant]

REACTIONS (2)
  - Dizziness [None]
  - Blood pressure decreased [None]

NARRATIVE: CASE EVENT DATE: 20150302
